FAERS Safety Report 6573097-0 (Version None)
Quarter: 2010Q1

REPORT INFORMATION
  Report Type: 
  Country: None (occurrence: None)
  Receive Date: 20100208
  Receipt Date: 20100127
  Transmission Date: 20100710
  Serious: Yes (Other)
  Sender: FDA-Public Use
  Company Number: ES-JNJFOC-20100200290

PATIENT
  Age: 56 Year
  Sex: Male

DRUGS (13)
  1. TOPIRAMATE [Suspect]
     Indication: DRUG USE FOR UNKNOWN INDICATION
     Route: 048
  2. JURNISTA [Concomitant]
     Indication: POST LAMINECTOMY SYNDROME
     Route: 048
  3. JURNISTA [Concomitant]
     Route: 048
  4. JURNISTA [Concomitant]
     Route: 048
  5. RABEPRAZOLE SODIUM [Concomitant]
     Indication: DRUG USE FOR UNKNOWN INDICATION
  6. CLONAZEPAM [Concomitant]
     Indication: POST LAMINECTOMY SYNDROME
  7. UNKNOWN MEDICATION [Concomitant]
     Indication: POST LAMINECTOMY SYNDROME
  8. AMITRIPTYLINE HCL [Concomitant]
     Indication: POST LAMINECTOMY SYNDROME
  9. PREGABALIN [Concomitant]
  10. DICLOFENACO [Concomitant]
     Indication: DRUG USE FOR UNKNOWN INDICATION
  11. LAXATIVE [Concomitant]
     Indication: CONSTIPATION PROPHYLAXIS
  12. METOCLOPRAMIDE [Concomitant]
     Indication: PROPHYLAXIS OF NAUSEA AND VOMITING
  13. DICLOFENAC SODIUM [Concomitant]
     Indication: POST LAMINECTOMY SYNDROME

REACTIONS (2)
  - PARAESTHESIA [None]
  - POST LAMINECTOMY SYNDROME [None]
